FAERS Safety Report 8100277-5 (Version None)
Quarter: 2012Q1

REPORT INFORMATION
  Report Type: 
  Country: None (occurrence: None)
  Receive Date: 20120129
  Receipt Date: 20111122
  Transmission Date: 20120608
  Serious: No
  Sender: FDA-Public Use
  Company Number: US-ABBOTT-11P-163-0877303-00

PATIENT
  Sex: Female

DRUGS (3)
  1. HUMIRA [Suspect]
     Indication: PSORIASIS
     Route: 058
     Dates: start: 20110328, end: 20111027
  2. HUMIRA [Suspect]
     Indication: PSORIATIC ARTHROPATHY
  3. CYCLOSPORINE [Suspect]
     Indication: PUSTULAR PSORIASIS
     Dosage: 300MG DAILY

REACTIONS (7)
  - DERMATITIS EXFOLIATIVE [None]
  - TONSILLITIS [None]
  - PSORIASIS [None]
  - ALOPECIA [None]
  - BLISTER [None]
  - PUSTULAR PSORIASIS [None]
  - BLOOD PRESSURE INCREASED [None]
